FAERS Safety Report 6209655-2 (Version None)
Quarter: 2009Q2

REPORT INFORMATION
  Report Type: 
  Country: None (occurrence: None)
  Receive Date: 20090601
  Receipt Date: 20090522
  Transmission Date: 20091009
  Serious: Yes (Other)
  Sender: FDA-Public Use
  Company Number: FR-BAYER-200918185GPV

PATIENT
  Age: 27 Year
  Sex: Female

DRUGS (1)
  1. MIRENA [Suspect]
     Indication: CONTRACEPTION
     Route: 015

REACTIONS (6)
  - AMENORRHOEA [None]
  - DIZZINESS [None]
  - PELVIC PAIN [None]
  - PROCEDURAL PAIN [None]
  - UTERINE RUPTURE [None]
  - WEIGHT INCREASED [None]
